FAERS Safety Report 11342533 (Version 2)
Quarter: 2015Q3

REPORT INFORMATION
  Report Type: Report from Study
  Country: GR (occurrence: GR)
  Receive Date: 20150805
  Receipt Date: 20150925
  Transmission Date: 20151125
  Serious: Yes (Hospitalization, Other)
  Sender: FDA-Public Use
  Company Number: GR-BAYER-2015-015383

PATIENT
  Age: 56 Year
  Sex: Male

DRUGS (17)
  1. NEXAVAR [Suspect]
     Active Substance: SORAFENIB
     Indication: HEPATOCELLULAR CARCINOMA
     Dosage: 400 MG, QD
     Route: 048
     Dates: start: 20140730, end: 20150103
  2. NEXAVAR [Suspect]
     Active Substance: SORAFENIB
     Indication: HEPATOCELLULAR CARCINOMA
     Dosage: 400 MG, QD
     Route: 048
     Dates: start: 20150120, end: 20150320
  3. LIPIODOL [Concomitant]
     Active Substance: ETHIODIZED OIL
     Indication: HEPATOCELLULAR CARCINOMA
  4. GEMCITABINE [Concomitant]
     Active Substance: GEMCITABINE\GEMCITABINE HYDROCHLORIDE
     Indication: HEPATOCELLULAR CARCINOMA
     Dosage: 750 MG
     Dates: start: 20140326, end: 20140326
  5. HUMALOG [Concomitant]
     Active Substance: INSULIN LISPRO
     Indication: TYPE 2 DIABETES MELLITUS
     Dosage: DAILY DOSE 30 IU
     Dates: start: 2008
  6. CIPROXIN [Concomitant]
     Active Substance: CIPROFLOXACIN
     Dosage: 800 MG, QD
     Dates: start: 20150707, end: 20150716
  7. 5-FU [Concomitant]
     Active Substance: FLUOROURACIL
     Indication: HEPATOCELLULAR CARCINOMA
     Dosage: 750 MG
     Dates: start: 20140326, end: 20140326
  8. LANTUS [Concomitant]
     Active Substance: INSULIN GLARGINE
     Indication: TYPE 2 DIABETES MELLITUS
     Dosage: DAILY DOSE 30 IU
     Dates: start: 2008
  9. HYDROCHLOROTHIAZIDE. [Concomitant]
     Active Substance: HYDROCHLOROTHIAZIDE
     Indication: HYPERTENSION
     Dosage: DAILY DOSE 25 MG
     Route: 048
     Dates: start: 2008
  10. FLAGYL [Concomitant]
     Active Substance: METRONIDAZOLE\METRONIDAZOLE HYDROCHLORIDE
     Dosage: 1500 MG, QD
     Dates: start: 20150707, end: 20150716
  11. LOBIVON [Concomitant]
     Active Substance: NEBIVOLOL HYDROCHLORIDE
     Indication: HYPERTENSION
     Dosage: DAILY DOSE 5 MG
     Route: 048
     Dates: start: 2008
  12. FLAGYL [Concomitant]
     Active Substance: METRONIDAZOLE\METRONIDAZOLE HYDROCHLORIDE
     Dosage: 1500 MG, QD
     Dates: start: 20150407, end: 20150427
  13. NEXAVAR [Suspect]
     Active Substance: SORAFENIB
     Indication: HEPATOCELLULAR CARCINOMA
     Dosage: 800 MG, QD
     Route: 048
     Dates: start: 20150403, end: 20150407
  14. BEGALIN [Concomitant]
     Dosage: DAILY DOSE 9 G
     Dates: start: 20140416, end: 20140422
  15. TAZOCIN [Concomitant]
     Active Substance: PIPERACILLIN SODIUM\TAZOBACTAM SODIUM
     Dosage: 13.500 G, QD
     Dates: start: 20150425, end: 20150514
  16. CIPROXIN [Concomitant]
     Active Substance: CIPROFLOXACIN
     Dosage: DAILY DOSE 800 MG
     Dates: start: 20140416, end: 20140422
  17. INNOHEP [Concomitant]
     Active Substance: TINZAPARIN SODIUM
     Dosage: DAILY DOSE 3500 IU
     Dates: start: 20140414, end: 20140723

REACTIONS (3)
  - Blood bilirubin increased [Recovered/Resolved]
  - Anal abscess [None]
  - Anal fistula [Recovering/Resolving]

NARRATIVE: CASE EVENT DATE: 20150103
